FAERS Safety Report 21234668 (Version 1)
Quarter: 2022Q3

REPORT INFORMATION
  Report Type: Spontaneous
  Country: US (occurrence: US)
  Receive Date: 20220820
  Receipt Date: 20220820
  Transmission Date: 20221026
  Serious: Yes (Other)
  Sender: FDA-Public Use
  Company Number: US-UNITED THERAPEUTICS-UNT-2022-018341

PATIENT
  Sex: Female
  Weight: 104.31 kg

DRUGS (3)
  1. REMODULIN [Suspect]
     Active Substance: TREPROSTINIL
     Indication: Pulmonary arterial hypertension
     Dosage: UNK, CONTINUING
     Route: 058
     Dates: start: 20220721
  2. REMODULIN [Suspect]
     Active Substance: TREPROSTINIL
     Dosage: 0.013 ?G/KG, CONTINUING [AT A PUMP RATE OF 21 MCL/HOUR (PREFILLED WITH 2.4 ML PER CASSETTE)]
     Route: 058
     Dates: start: 2022
  3. OPSUMIT [Concomitant]
     Active Substance: MACITENTAN
     Indication: Product used for unknown indication
     Dosage: UNK
     Route: 065

REACTIONS (3)
  - Thrombosis [Unknown]
  - Contusion [Unknown]
  - Device wireless communication issue [Unknown]

NARRATIVE: CASE EVENT DATE: 20220101
